FAERS Safety Report 16462847 (Version 5)
Quarter: 2019Q3

REPORT INFORMATION
  Report Type: Spontaneous
  Country: CA (occurrence: CA)
  Receive Date: 20190621
  Receipt Date: 20190910
  Transmission Date: 20191004
  Serious: Yes (Hospitalization, Other)
  Sender: FDA-Public Use
  Company Number: CA-CELLTRION INC.-2019CA021294

PATIENT

DRUGS (20)
  1. PENTASA [Concomitant]
     Active Substance: MESALAMINE
     Dosage: UNK, DAILY BED TIME
  2. PENTASA [Concomitant]
     Active Substance: MESALAMINE
     Dosage: UNK HS
     Route: 054
  3. LOPERAMIDE TEVA [Concomitant]
     Active Substance: LOPERAMIDE
     Dosage: UNK UNK, 4X/DAY (+ AS NEEDED (MAX: 8 TABS A DAY))
     Route: 065
  4. PROLIA [Concomitant]
     Active Substance: DENOSUMAB
     Dosage: UNK
     Route: 058
  5. PREDNISONE. [Concomitant]
     Active Substance: PREDNISONE
     Dosage: UNK UNK, 1X/DAY
     Route: 048
     Dates: start: 201811, end: 2019
  6. INFLECTRA [Suspect]
     Active Substance: INFLIXIMAB-DYYB
     Dosage: 10 MG/KG EVERY 4 WEEKS, THEN EVERY 8 WEEKS
     Route: 042
     Dates: start: 20190503, end: 20190503
  7. INFLECTRA [Suspect]
     Active Substance: INFLIXIMAB-DYYB
     Dosage: 10 MG/KG (EVERY 4 WEEKS)
     Route: 042
     Dates: start: 20190705
  8. INFLECTRA [Suspect]
     Active Substance: INFLIXIMAB-DYYB
     Dosage: 10 MG/KG EVERY 4 WEEKS
     Route: 042
     Dates: start: 20190802
  9. INFLECTRA [Suspect]
     Active Substance: INFLIXIMAB-DYYB
     Dosage: 10 MG/KG EVERY 4 WEEKS
     Route: 042
     Dates: start: 20190829
  10. CELECOXIB. [Concomitant]
     Active Substance: CELECOXIB
     Dosage: 100 MG, 2X/DAY (X 7 DAYS)
     Route: 048
  11. INFLECTRA [Suspect]
     Active Substance: INFLIXIMAB-DYYB
     Indication: CROHN^S DISEASE
     Dosage: UNK, EVERY 0, 2 WEEKS
     Route: 042
     Dates: start: 20190405, end: 20190417
  12. INFLECTRA [Suspect]
     Active Substance: INFLIXIMAB-DYYB
     Dosage: 10 MG/KG RESCUE DOSE
     Route: 042
     Dates: start: 20190607, end: 20190607
  13. APO-AMITRIPTYLINE [Concomitant]
     Active Substance: AMITRIPTYLINE HYDROCHLORIDE
     Dosage: 2 DF, DAILY (HS (BEFORE SLEEP))
     Route: 048
  14. TYLENOL [Concomitant]
     Active Substance: ACETAMINOPHEN
     Indication: PYREXIA
     Dosage: 1000 MG, EVERY 6 HOURS
     Dates: start: 201905
  15. MEZAVANT [Concomitant]
     Active Substance: MESALAMINE
     Dosage: 4 DF, 1X/DAY
     Route: 065
  16. JAMP-CALCIUM + VITAMIN D [Concomitant]
     Dosage: 500 MG, 1X/DAY
     Route: 048
  17. LOPERAMIDE TEVA [Concomitant]
     Active Substance: LOPERAMIDE
     Dosage: UNK, AS NEEDED (4X/DAY + AS NEEDED (MAX: 8 TABS A DAY))
  18. VITAMIN D [Concomitant]
     Active Substance: VITAMIN D NOS
     Dosage: 1200 MG, 1X/DAY
     Route: 048
  19. APO-AMITRIPTYLINE [Concomitant]
     Active Substance: AMITRIPTYLINE HYDROCHLORIDE
     Dosage: 2 DF, DAILY (HS (BEFORE SLEEP))
     Route: 065
  20. PREGABALIN TEVA [Concomitant]
     Active Substance: PREGABALIN
     Dosage: 25 MG, 2X/DAY
     Route: 048

REACTIONS (18)
  - Fatigue [Unknown]
  - Heart rate abnormal [Unknown]
  - Headache [Not Recovered/Not Resolved]
  - Rhinorrhoea [Unknown]
  - Insomnia [Unknown]
  - Haematochezia [Not Recovered/Not Resolved]
  - Pyrexia [Recovered/Resolved]
  - Inappropriate schedule of product administration [Unknown]
  - Condition aggravated [Unknown]
  - Off label use [Unknown]
  - Hypoaesthesia [Unknown]
  - Malaise [Unknown]
  - Condition aggravated [Unknown]
  - Cough [Unknown]
  - Product use issue [Unknown]
  - Dehydration [Unknown]
  - Respiratory tract congestion [Unknown]
  - Osteoporosis [Unknown]

NARRATIVE: CASE EVENT DATE: 201905
